FAERS Safety Report 21957506 (Version 3)
Quarter: 2023Q1

REPORT INFORMATION
  Report Type: Spontaneous
  Country: US (occurrence: US)
  Receive Date: 20230206
  Receipt Date: 20230209
  Transmission Date: 20230417
  Serious: No
  Sender: FDA-Public Use
  Company Number: US-PFIZER INC-202300053557

PATIENT
  Sex: Female

DRUGS (2)
  1. PAXLOVID [Suspect]
     Active Substance: NIRMATRELVIR\RITONAVIR
     Indication: COVID-19 treatment
     Dosage: UNK
  2. ERIVEDGE [Suspect]
     Active Substance: VISMODEGIB
     Indication: Basal cell carcinoma
     Dosage: 150 MG
     Route: 048

REACTIONS (7)
  - Dry mouth [Unknown]
  - Dysgeusia [Unknown]
  - Thirst [Unknown]
  - Ageusia [Unknown]
  - Abdominal discomfort [Unknown]
  - Condition aggravated [Unknown]
  - Insomnia [Unknown]
